FAERS Safety Report 13758260 (Version 3)
Quarter: 2017Q3

REPORT INFORMATION
  Report Type: Spontaneous
  Country: US (occurrence: US)
  Receive Date: 20170717
  Receipt Date: 20170913
  Transmission Date: 20171127
  Serious: No
  Sender: FDA-Public Use
  Company Number: US-PFIZER INC-2017307955

PATIENT
  Age: 64 Year
  Sex: Female

DRUGS (2)
  1. KERYDIN [Suspect]
     Active Substance: TAVABOROLE
     Indication: ONYCHOMYCOSIS
     Dosage: UNK UNK, 1X/DAY
     Dates: start: 201701
  2. LYRICA [Concomitant]
     Active Substance: PREGABALIN
     Indication: NEUROPATHY PERIPHERAL
     Dosage: 75 MG, 4X/DAY
     Route: 048
     Dates: start: 20170115

REACTIONS (1)
  - Application site inflammation [Not Recovered/Not Resolved]

NARRATIVE: CASE EVENT DATE: 201701
